FAERS Safety Report 8966822 (Version 3)
Quarter: 2013Q1

REPORT INFORMATION
  Report Type: Spontaneous
  Country: FR (occurrence: FR)
  Receive Date: 20121217
  Receipt Date: 20130128
  Transmission Date: 20140127
  Serious: Yes (Hospitalization)
  Sender: FDA-Public Use
  Company Number: FR-PFIZER INC-2012314884

PATIENT
  Age: 53 Year
  Sex: Male
  Weight: 68 kg

DRUGS (6)
  1. EFFEXOR LP [Suspect]
     Indication: DEPRESSION
     Dosage: 75 MG, 1X/DAY
     Dates: start: 20121110, end: 2012
  2. EFFEXOR LP [Suspect]
     Dosage: 75 MG, 2X/DAY
     Dates: start: 2012, end: 2012
  3. EFFEXOR LP [Suspect]
     Dosage: 75 MG, 3X/DAY
     Dates: start: 2012, end: 2012
  4. EFFEXOR LP [Suspect]
     Dosage: 75 MG, 2X/DAY
     Dates: start: 20121205
  5. SERESTA [Concomitant]
     Indication: DEPRESSION
     Dosage: 20 MG X 3 DAILY AND 50 MG IN THE EVENING
     Route: 048
     Dates: start: 20121020
  6. NOCTAMID [Concomitant]
     Indication: DEPRESSION
     Dosage: 2 MG IN THE EVENING
     Route: 048
     Dates: start: 20121020

REACTIONS (2)
  - Urinary tract infection [Recovered/Resolved]
  - Urinary retention [Recovered/Resolved]
